FAERS Safety Report 18726502 (Version 1)
Quarter: 2021Q1

REPORT INFORMATION
  Report Type: Spontaneous
  Country: US (occurrence: US)
  Receive Date: 20210111
  Receipt Date: 20210111
  Transmission Date: 20210419
  Serious: No
  Sender: FDA-Public Use
  Company Number: US-COLLEGIUM PHARMACEUTICAL, INC.-US-2020COL000455

PATIENT
  Age: 61 Year
  Sex: Male

DRUGS (3)
  1. NUCYNTA [Suspect]
     Active Substance: TAPENTADOL HYDROCHLORIDE
     Indication: NECK PAIN
  2. NUCYNTA [Suspect]
     Active Substance: TAPENTADOL HYDROCHLORIDE
     Indication: ILL-DEFINED DISORDER
     Dosage: 150 MG, UNK
     Dates: start: 202006, end: 202006
  3. NUCYNTA [Suspect]
     Active Substance: TAPENTADOL HYDROCHLORIDE
     Indication: BACK DISORDER
     Dosage: 200 MG, BID
     Dates: start: 202006

REACTIONS (7)
  - Cold sweat [Unknown]
  - Feeling hot [Unknown]
  - Fatigue [Unknown]
  - Drug ineffective [Unknown]
  - Gait disturbance [Unknown]
  - Asthenia [Unknown]
  - Dyspnoea [Unknown]

NARRATIVE: CASE EVENT DATE: 202006
